FAERS Safety Report 19211301 (Version 2)
Quarter: 2021Q2

REPORT INFORMATION
  Report Type: Spontaneous
  Country: US (occurrence: US)
  Receive Date: 20210501
  Receipt Date: 20210507
  Transmission Date: 20210717
  Serious: Yes (Life-Threatening, Hospitalization, Other)
  Sender: FDA-Public Use
  Company Number: US-TORRENT-00011057

PATIENT
  Age: 22 Year
  Sex: Female

DRUGS (2)
  1. FLUOXETINE [Suspect]
     Active Substance: FLUOXETINE HYDROCHLORIDE
     Indication: DEPRESSION
     Dosage: 10 MG DAILY
  2. OXYCODONE [Interacting]
     Active Substance: OXYCODONE
     Indication: POSTOPERATIVE ANALGESIA
     Dosage: 5 MG EVERY 4 HOURS

REACTIONS (4)
  - Lactic acidosis [Recovered/Resolved]
  - Leukocytosis [Recovered/Resolved]
  - Serotonin syndrome [Recovered/Resolved]
  - Drug interaction [Recovered/Resolved]
